FAERS Safety Report 19045663 (Version 1)
Quarter: 2021Q1

REPORT INFORMATION
  Report Type: Spontaneous
  Country: ES (occurrence: ES)
  Receive Date: 20210323
  Receipt Date: 20210323
  Transmission Date: 20210420
  Serious: Yes (Hospitalization)
  Sender: FDA-Public Use
  Company Number: ES-TEVA-2021-ES-1892865

PATIENT
  Age: 56 Year
  Sex: Female

DRUGS (16)
  1. QUETIAPINE. [Suspect]
     Active Substance: QUETIAPINE
     Indication: DEPRESSION
     Dosage: FOR A MONTH
     Route: 065
  2. CLOMIPRAMINE [Suspect]
     Active Substance: CLOMIPRAMINE
     Indication: DEPRESSION
     Dosage: 75 MILLIGRAM DAILY; FROM THE 7TH TO THE 21ST DAY
     Route: 065
  3. TRAZODONE [Suspect]
     Active Substance: TRAZODONE HYDROCHLORIDE
     Indication: DEPRESSION
     Dosage: 100 MILLIGRAM DAILY; FROM THE 7TH TO THE 21ST DAY
     Route: 065
  4. VENLAFAXINE [Suspect]
     Active Substance: VENLAFAXINE HYDROCHLORIDE
     Indication: DEPRESSION
     Dosage: 75 MILLIGRAM DAILY; FOLLOWED BY 150 MG DAILY
     Route: 065
  5. DULOXETINE. [Suspect]
     Active Substance: DULOXETINE
     Dosage: 10 MILLIGRAM DAILY; IN DESCENDING DOSE FROM 90 TO 10 MG DAILY, FROM THE 1ST DAY TO SUSPENSION ON 9TH
     Route: 065
  6. MIDAZOLAM. [Suspect]
     Active Substance: MIDAZOLAM
     Indication: DEPRESSION
     Dosage: 7.5 MILLIGRAM DAILY; AT NIGHT; FROM 1ST TO THE 35TH DAY (DAY OF DISCHARGE)
     Route: 065
  7. BROMAZEPAM [Concomitant]
     Active Substance: BROMAZEPAM
     Indication: DEPRESSION
     Dosage: IN THE MORNING
     Route: 065
  8. FLUOXETINE [Suspect]
     Active Substance: FLUOXETINE HYDROCHLORIDE
     Indication: DEPRESSION
     Dosage: A 5?MONTH PERIOD
     Route: 065
  9. VENLAFAXINE [Suspect]
     Active Substance: VENLAFAXINE HYDROCHLORIDE
     Indication: DEPRESSION
     Route: 065
  10. DULOXETINE. [Suspect]
     Active Substance: DULOXETINE
     Indication: DEPRESSION
     Dosage: 90 MILLIGRAM DAILY;
     Route: 065
  11. BROMAZEPAM [Concomitant]
     Active Substance: BROMAZEPAM
     Dosage: AT NIGHT
     Route: 065
  12. OLANZAPINE. [Suspect]
     Active Substance: OLANZAPINE
     Indication: DEPRESSION
     Dosage: FOR A MONTH
     Route: 065
  13. MIRTAZAPINE. [Suspect]
     Active Substance: MIRTAZAPINE
     Indication: DEPRESSION
     Dosage: 7.5 MILLIGRAM DAILY;
     Route: 065
  14. VORTIOXETINE. [Suspect]
     Active Substance: VORTIOXETINE
     Indication: DEPRESSION
     Dosage: 5 MILLIGRAM DAILY;
     Route: 065
  15. VORTIOXETINE. [Suspect]
     Active Substance: VORTIOXETINE
     Dosage: 30 MILLIGRAM DAILY; IN ASCENDING DOSE FROM 5 TO 30 MG DAILY FROM THE 1ST DAY TO 9TH DAY AND IN DESCE
     Route: 065
  16. LORAZEPAM. [Suspect]
     Active Substance: LORAZEPAM
     Indication: DEPRESSION
     Dosage: FROM 1ST TO THE 35TH DAY
     Route: 065

REACTIONS (4)
  - Dizziness [Unknown]
  - Drug-induced liver injury [Recovered/Resolved]
  - Drug ineffective [Unknown]
  - Fatigue [Unknown]
